FAERS Safety Report 6738986-2 (Version None)
Quarter: 2010Q2

REPORT INFORMATION
  Report Type: 
  Country: None (occurrence: None)
  Receive Date: 20100524
  Receipt Date: 20100524
  Transmission Date: 20101027
  Serious: No
  Sender: FDA-Public Use
  Company Number: None

PATIENT
  Age: 58 Year
  Sex: Male
  Weight: 49.9 kg

DRUGS (1)
  1. ETHAMBUTOL HYDROCHLORIDE [Suspect]
     Indication: MYCOBACTERIUM AVIUM COMPLEX INFECTION
     Dosage: 800 MG EVERY DAY PO
     Route: 048
     Dates: start: 20090605, end: 20090715

REACTIONS (2)
  - BLINDNESS TRANSIENT [None]
  - TOXIC OPTIC NEUROPATHY [None]
